FAERS Safety Report 25077438 (Version 2)
Quarter: 2025Q3

REPORT INFORMATION
  Report Type: Spontaneous
  Country: US (occurrence: US)
  Receive Date: 20250314
  Receipt Date: 20250810
  Transmission Date: 20251020
  Serious: No
  Sender: ALEXION PHARMACEUTICALS
  Company Number: US-AstraZeneca-CH-00820536A

PATIENT
  Age: 55 Year
  Sex: Female

DRUGS (1)
  1. FARXIGA [Suspect]
     Active Substance: DAPAGLIFLOZIN PROPANEDIOL
     Indication: Type 2 diabetes mellitus
     Route: 065

REACTIONS (3)
  - Eye infection [Unknown]
  - Haemorrhoids [Unknown]
  - Inflammation [Unknown]

NARRATIVE: CASE EVENT DATE: 20240801
